FAERS Safety Report 25935058 (Version 2)
Quarter: 2025Q4

REPORT INFORMATION
  Report Type: Spontaneous
  Country: EU (occurrence: EU)
  Receive Date: 20251017
  Receipt Date: 20251031
  Transmission Date: 20260117
  Serious: Yes (Other)
  Sender: pharmaAND
  Company Number: None

PATIENT
  Age: 63 Year
  Sex: Male
  Weight: 45 kg

DRUGS (8)
  1. PEGASYS [Suspect]
     Active Substance: PEGINTERFERON ALFA-2A
     Indication: Essential thrombocythaemia
     Route: 058
     Dates: start: 20250807
  2. ESOMEPRAZOLE [Concomitant]
     Active Substance: ESOMEPRAZOLE
     Dosage: FASTING
  3. ENOXAPARIN [Concomitant]
     Active Substance: ENOXAPARIN
     Dosage: 1 INJECTION EVERY 12 HOURS
  4. Azilsartan + Clorotalidon [Concomitant]
     Dosage: 1 TABLET EVERY 12 HOURS
  5. SOTALOL [Concomitant]
     Active Substance: SOTALOL
     Dosage: 1/2 TABLET DURING BREAKFAST
  6. Pravastatin + Fenofibrat [Concomitant]
     Dosage: 1 TABLET EVERY DAY DURING DINNER
  7. UMECLIDINIUM BROMIDE AND VILANTEROL TRIFENATATE [Concomitant]
     Active Substance: UMECLIDINIUM BROMIDE\VILANTEROL TRIFENATATE
  8. HYDROXYUREA [Concomitant]
     Active Substance: HYDROXYUREA
     Dosage: 2 TABLETS AT 11:00 AM

REACTIONS (5)
  - Emotional disorder [Recovered/Resolved]
  - Dry skin [Recovered/Resolved]
  - Insomnia [Recovered/Resolved]
  - Pruritus [Recovered/Resolved]
  - Flushing [Recovered/Resolved]

NARRATIVE: CASE EVENT DATE: 20250810
